FAERS Safety Report 11533954 (Version 1)
Quarter: 2015Q3

REPORT INFORMATION
  Report Type: Spontaneous
  Country: FR (occurrence: FR)
  Receive Date: 20150922
  Receipt Date: 20150922
  Transmission Date: 20151125
  Serious: Yes (Hospitalization)
  Sender: FDA-Public Use
  Company Number: FR-ROCHE-1636207

PATIENT
  Age: 22 Year
  Sex: Male

DRUGS (7)
  1. XEPLION [Suspect]
     Active Substance: PALIPERIDONE PALMITATE
     Indication: DELIRIUM
     Route: 030
     Dates: start: 20150619, end: 20150619
  2. INEXIUM [Concomitant]
     Active Substance: ESOMEPRAZOLE
     Route: 048
     Dates: start: 20150623
  3. TERCIAN [Suspect]
     Active Substance: CYAMEMAZINE
     Indication: DELIRIUM
     Dosage: 15 DROPS 3 TIMES A DAY + 30 DROPS AT NIGHT
     Route: 048
     Dates: start: 20150619
  4. TERCIAN [Suspect]
     Active Substance: CYAMEMAZINE
     Dosage: 20 DROPS 4 TIMES A DAY.
     Route: 048
     Dates: start: 20150625
  5. RISPERIDONE. [Suspect]
     Active Substance: RISPERIDONE
     Indication: DELIRIUM
     Route: 048
     Dates: start: 20150619
  6. VALIUM [Suspect]
     Active Substance: DIAZEPAM
     Indication: PRODUCT USED FOR UNKNOWN INDICATION
     Route: 048
     Dates: start: 20150622
  7. VALIUM [Suspect]
     Active Substance: DIAZEPAM
     Dosage: 20 MG/DAY
     Route: 048
     Dates: start: 20150625

REACTIONS (2)
  - Pulmonary infarction [Recovered/Resolved]
  - Pulmonary embolism [Recovered/Resolved]

NARRATIVE: CASE EVENT DATE: 20150624
